FAERS Safety Report 23616347 (Version 2)
Quarter: 2025Q3

REPORT INFORMATION
  Report Type: Report from Study
  Country: US (occurrence: US)
  Receive Date: 20240311
  Receipt Date: 20250702
  Transmission Date: 20251020
  Serious: Yes (Other)
  Sender: BRISTOL-MYERS SQUIBB COMPANY
  Company Number: US-BRISTOL-MYERS SQUIBB COMPANY-2024-036283

PATIENT
  Age: 39 Year
  Sex: Female
  Weight: 74.8 kg

DRUGS (10)
  1. ORENCIA [Suspect]
     Active Substance: ABATACEPT
     Indication: Rheumatoid arthritis
     Dosage: 750ML
     Route: 042
  2. LUMRYZ [Suspect]
     Active Substance: SODIUM OXYBATE
     Indication: Narcolepsy
     Dates: start: 20240219, end: 202406
  3. LUMRYZ [Suspect]
     Active Substance: SODIUM OXYBATE
     Dosage: 6G ONCE NIGHTLY
     Dates: start: 20240123, end: 20240130
  4. LUMRYZ [Suspect]
     Active Substance: SODIUM OXYBATE
     Dosage: 9 G NIGHTLY
     Dates: start: 20240219, end: 202406
  5. LUMRYZ [Suspect]
     Active Substance: SODIUM OXYBATE
     Dates: start: 202404
  6. AZATHIOPRINE [Concomitant]
     Active Substance: AZATHIOPRINE
     Indication: Product used for unknown indication
  7. AZATHIOPRINE [Concomitant]
     Active Substance: AZATHIOPRINE
  8. ELIQUIS [Concomitant]
     Active Substance: APIXABAN
     Indication: Product used for unknown indication
  9. RITALIN [Concomitant]
     Active Substance: METHYLPHENIDATE HYDROCHLORIDE
     Indication: Product used for unknown indication
  10. MODAFINIL [Concomitant]
     Active Substance: MODAFINIL
     Indication: Product used for unknown indication

REACTIONS (6)
  - Upper respiratory tract infection [Recovering/Resolving]
  - Sinusitis [Recovering/Resolving]
  - Product supply issue [Unknown]
  - Vomiting projectile [Unknown]
  - Loss of consciousness [Recovered/Resolved]
  - Hypopnoea [Recovered/Resolved]

NARRATIVE: CASE EVENT DATE: 20240101
